FAERS Safety Report 11906836 (Version 1)
Quarter: 2016Q1

REPORT INFORMATION
  Report Type: Spontaneous
  Country: US (occurrence: None)
  Receive Date: 20160108
  Receipt Date: 20160108
  Transmission Date: 20160526
  Serious: Yes (Other)
  Sender: FDA-Public Use
  Company Number: None

PATIENT
  Age: 63 Year
  Sex: Female

DRUGS (1)
  1. XELODA [Suspect]
     Active Substance: CAPECITABINE
     Indication: COLON CANCER
     Dosage: UNCLEAR, WAS ON IT LAST FALL AND JUST
     Route: 048

REACTIONS (2)
  - Muscle spasms [None]
  - Frostbite [None]

NARRATIVE: CASE EVENT DATE: 20160106
